FAERS Safety Report 9504356 (Version 1)
Quarter: 2013Q3

REPORT INFORMATION
  Report Type: Spontaneous
  Country: US (occurrence: US)
  Receive Date: 20130906
  Receipt Date: 20130906
  Transmission Date: 20140515
  Serious: Yes (Hospitalization)
  Sender: FDA-Public Use
  Company Number: US-BAYER-2013-107503

PATIENT
  Age: 71 Year
  Sex: Male
  Weight: 99.77 kg

DRUGS (3)
  1. BAYER ASPIRIN REGIMEN ADULT LOW STRENGTH [Suspect]
     Indication: ISCHAEMIC HEART DISEASE PROPHYLAXIS
     Dosage: 81 MG, QD
     Route: 048
     Dates: end: 201301
  2. FISH OIL [Concomitant]
  3. CENTRUM [Concomitant]

REACTIONS (4)
  - Pulmonary embolism [None]
  - Thrombosis [None]
  - Wheezing [None]
  - Cough [None]
